FAERS Safety Report 20390714 (Version 1)
Quarter: 2022Q1

REPORT INFORMATION
  Report Type: Spontaneous
  Country: US (occurrence: None)
  Receive Date: 20220127
  Receipt Date: 20220127
  Transmission Date: 20220423
  Serious: Yes (Hospitalization)
  Sender: FDA-Public Use
  Company Number: None

PATIENT
  Sex: Female

DRUGS (1)
  1. REMICADE [Suspect]
     Active Substance: INFLIXIMAB
     Indication: Rheumatoid arthritis
     Dosage: 590 MG EVERY 6 WEEKS IV?
     Route: 042
     Dates: start: 20130708

REACTIONS (4)
  - Pruritus [None]
  - Urticaria [None]
  - Therapy non-responder [None]
  - Arthralgia [None]
